FAERS Safety Report 17533728 (Version 1)
Quarter: 2020Q1

REPORT INFORMATION
  Report Type: Spontaneous
  Country: US (occurrence: US)
  Receive Date: 20200312
  Receipt Date: 20200312
  Transmission Date: 20200409
  Serious: Yes (Other)
  Sender: FDA-Public Use
  Company Number: None

PATIENT
  Age: 38 Year
  Sex: Male
  Weight: 108 kg

DRUGS (7)
  1. ADDERALL 10MG XR IN THE AFTERNOON [Concomitant]
  2. ADDERALL 30MG XR IN THE MORNING [Concomitant]
  3. VIIBRYD 40MG DAILY [Concomitant]
  4. VITAMIN B12 [Concomitant]
     Active Substance: CYANOCOBALAMIN
  5. VITAMIN D3 2000 IU DAILY [Concomitant]
  6. DEXTROAMPHET SACCHARAT, AMPHET ASPARTATE, DEXTROAMPHET SULFATE AND AMPHET SULFAT [Suspect]
     Active Substance: AMPHETAMINE ASPARTATE\AMPHETAMINE SULFATE\DEXTROAMPHETAMINE SACCHARATE\DEXTROAMPHETAMINE SULFATE
     Indication: ATTENTION DEFICIT/HYPERACTIVITY DISORDER
     Dosage: ?          QUANTITY:30 CAPSULE(S);?
     Route: 048
  7. CIALIS 5MG DAILY [Concomitant]

REACTIONS (6)
  - Product quality issue [None]
  - Drug ineffective [None]
  - Fatigue [None]
  - Depression [None]
  - Disturbance in attention [None]
  - Erectile dysfunction [None]

NARRATIVE: CASE EVENT DATE: 20200207
